FAERS Safety Report 4286802-3 (Version None)
Quarter: 2004Q1

REPORT INFORMATION
  Report Type: 
  Country: None (occurrence: None)
  Receive Date: 20040204
  Receipt Date: 20040128
  Transmission Date: 20041129
  Serious: Yes (Hospitalization)
  Sender: FDA-Public Use
  Company Number: US-JNJFOC-20040106014

PATIENT
  Age: 33 Year
  Sex: Female

DRUGS (5)
  1. TOPAMAX [Suspect]
     Indication: BIPOLAR DISORDER
  2. LEXAPRO (ALL OTHER THERAPEUTIC PRODUCTS) [Concomitant]
  3. XANAX [Concomitant]
  4. SYNTHROID [Concomitant]
  5. RESTORIL [Concomitant]

REACTIONS (1)
  - WEIGHT DECREASED [None]
